FAERS Safety Report 13847227 (Version 1)
Quarter: 2017Q3

REPORT INFORMATION
  Report Type: Report from Study
  Country: CA (occurrence: CA)
  Receive Date: 20170808
  Receipt Date: 20170808
  Transmission Date: 20171127
  Serious: Yes (Hospitalization)
  Sender: FDA-Public Use
  Company Number: CA-TAKEDA-2017MPI006461

PATIENT
  Sex: Female

DRUGS (3)
  1. REVLIMID [Suspect]
     Active Substance: LENALIDOMIDE
     Indication: PRODUCT USED FOR UNKNOWN INDICATION
     Dosage: UNK
     Route: 065
     Dates: start: 20170210
  2. IXAZOMIB [Suspect]
     Active Substance: IXAZOMIB
     Indication: PRODUCT USED FOR UNKNOWN INDICATION
     Dosage: UNK
     Route: 048
     Dates: start: 20170210
  3. DEXAMETHASONE. [Suspect]
     Active Substance: DEXAMETHASONE
     Indication: PRODUCT USED FOR UNKNOWN INDICATION
     Dosage: UNK
     Route: 065
     Dates: start: 20170210

REACTIONS (9)
  - Malaise [Unknown]
  - Eye swelling [Recovered/Resolved]
  - Rash erythematous [Recovered/Resolved]
  - Pyrexia [Unknown]
  - Scab [Recovered/Resolved]
  - Lethargy [Unknown]
  - Bone pain [Unknown]
  - Adverse event [Unknown]
  - Sinus disorder [Unknown]

NARRATIVE: CASE EVENT DATE: 20170717
